FAERS Safety Report 7592580-2 (Version None)
Quarter: 2011Q3

REPORT INFORMATION
  Report Type: 
  Country: None (occurrence: None)
  Receive Date: 20110706
  Receipt Date: 20101230
  Transmission Date: 20111222
  Serious: No
  Sender: FDA-Public Use
  Company Number: US-TYCO HEALTHCARE/MALLINCKRODT-T201002490

PATIENT

DRUGS (2)
  1. OXYCODONE/ACETAMINOPHEN [Suspect]
     Indication: PAIN
     Dosage: UNK
  2. OXYCODONE/ACETAMINOPHEN [Suspect]
     Dosage: DOUBLED DOSE

REACTIONS (5)
  - FEELING ABNORMAL [None]
  - DRUG INEFFECTIVE [None]
  - DRUG EFFECT DECREASED [None]
  - ANGER [None]
  - WITHDRAWAL SYNDROME [None]
